FAERS Safety Report 23205735 (Version 5)
Quarter: 2025Q1

REPORT INFORMATION
  Report Type: Spontaneous
  Country: NO (occurrence: NO)
  Receive Date: 20231120
  Receipt Date: 20250115
  Transmission Date: 20250408
  Serious: Yes (Other)
  Sender: ROCHE
  Company Number: NO-002147023-NVSC2023NO238762

PATIENT
  Sex: Female

DRUGS (8)
  1. XOLAIR [Suspect]
     Active Substance: OMALIZUMAB
     Indication: Mast cell activation syndrome
     Route: 065
     Dates: start: 20231002
  2. XOLAIR [Suspect]
     Active Substance: OMALIZUMAB
     Route: 065
     Dates: start: 20231019
  3. XOLAIR [Suspect]
     Active Substance: OMALIZUMAB
     Route: 065
     Dates: start: 20231102
  4. XOLAIR [Suspect]
     Active Substance: OMALIZUMAB
     Dosage: 150 MG, QW2
     Route: 058
     Dates: start: 20230918
  5. MONTELUKAST [Concomitant]
     Active Substance: MONTELUKAST
     Indication: Product used for unknown indication
  6. EBASTINE [Concomitant]
     Active Substance: EBASTINE
     Indication: Product used for unknown indication
  7. CLOTRIMAZOLE [Concomitant]
     Active Substance: CLOTRIMAZOLE
     Indication: Product used for unknown indication
  8. PEPCID [Concomitant]
     Active Substance: FAMOTIDINE
     Indication: Product used for unknown indication

REACTIONS (29)
  - Foetal hypokinesia [Unknown]
  - Syncope [Unknown]
  - Uterine haemorrhage [Unknown]
  - Anaphylactic reaction [Unknown]
  - Uterine hypertonus [Unknown]
  - Pain [Recovering/Resolving]
  - Visceral pain [Unknown]
  - Abdominal pain [Unknown]
  - Neuralgia [Unknown]
  - Pyrexia [Unknown]
  - Back pain [Unknown]
  - Balance disorder [Unknown]
  - Tremor [Unknown]
  - Rash pruritic [Unknown]
  - Pruritus [Unknown]
  - Gastrointestinal pain [Unknown]
  - Condition aggravated [Unknown]
  - Procedural headache [Unknown]
  - Maternal exposure during pregnancy [Unknown]
  - Prolonged labour [Unknown]
  - Labour pain [Unknown]
  - Off label use [Unknown]
  - Premature labour [Unknown]
  - Drug hypersensitivity [Unknown]
  - Poor quality sleep [Unknown]
  - Abdominal pain upper [Unknown]
  - Abnormal labour affecting foetus [Unknown]
  - Haemorrhage [Unknown]
  - Uterine hypertonus [Unknown]

NARRATIVE: CASE EVENT DATE: 20231102
